FAERS Safety Report 21001891 (Version 1)
Quarter: 2022Q2

REPORT INFORMATION
  Report Type: Spontaneous
  Country: US (occurrence: US)
  Receive Date: 20220624
  Receipt Date: 20220624
  Transmission Date: 20220721
  Serious: Yes (Hospitalization)
  Sender: FDA-Public Use
  Company Number: US-RECORDATI RARE DISEASE INC.-2022002630

PATIENT
  Age: 51 Year
  Sex: Male

DRUGS (2)
  1. PANHEMATIN [Suspect]
     Active Substance: HEMIN
     Indication: Porphyria acute
     Dosage: UNK, 1 VIAL DAILY FOR 4 DAYS
     Route: 042
  2. PANHEMATIN [Suspect]
     Active Substance: HEMIN
     Dosage: UNK, 1 VIAL WEEKLY
     Route: 042

REACTIONS (2)
  - Porphyria [Not Recovered/Not Resolved]
  - Off label use [Unknown]

NARRATIVE: CASE EVENT DATE: 20220601
